FAERS Safety Report 17688726 (Version 1)
Quarter: 2020Q2

REPORT INFORMATION
  Report Type: Report from Study
  Country: US (occurrence: US)
  Receive Date: 20200421
  Receipt Date: 20200421
  Transmission Date: 20200714
  Serious: Yes (Other)
  Sender: FDA-Public Use
  Company Number: US-BRISTOL-MYERS SQUIBB COMPANY-BMS-2020-032186

PATIENT
  Sex: Female
  Weight: 78.93 kg

DRUGS (2)
  1. ABATACEPT [Suspect]
     Active Substance: ABATACEPT
     Indication: RHEUMATOID ARTHRITIS
     Dosage: 125 MILLIGRAM, QWK
     Route: 058
  2. ABATACEPT [Suspect]
     Active Substance: ABATACEPT
     Indication: RHEUMATOID ARTHRITIS
     Dosage: 125 MILLIGRAM, QWK ON WEDNESDAYS
     Route: 058

REACTIONS (7)
  - Rheumatoid arthritis [Unknown]
  - Erythema [Unknown]
  - Rosacea [Unknown]
  - Systemic lupus erythematosus [Unknown]
  - Injection site pain [Unknown]
  - Injection site pruritus [Unknown]
  - Contusion [Unknown]

NARRATIVE: CASE EVENT DATE: 2019
